FAERS Safety Report 10578880 (Version 3)
Quarter: 2015Q1

REPORT INFORMATION
  Report Type: Report from Study
  Country: None (occurrence: AU)
  Receive Date: 20141112
  Receipt Date: 20150109
  Transmission Date: 20150720
  Serious: Yes (Other)
  Sender: FDA-Public Use
  Company Number: AU-ASPEN PHARMA TRADING LIMITED US-AG-2014-007075

PATIENT
  Age: 62 Year
  Sex: Male

DRUGS (19)
  1. PARACETAMOL [Suspect]
     Active Substance: ACETAMINOPHEN
     Indication: CHRONIC LYMPHOCYTIC LEUKAEMIA
     Route: 048
     Dates: start: 20110303
  2. HYDROCORTISONE. [Suspect]
     Active Substance: HYDROCORTISONE
     Indication: CHRONIC LYMPHOCYTIC LEUKAEMIA
     Route: 042
     Dates: start: 20110503
  3. CHLORAMBUCIL [Suspect]
     Active Substance: CHLORAMBUCIL
     Indication: CHRONIC LYMPHOCYTIC LEUKAEMIA
     Route: 048
     Dates: start: 20110504
  4. LORATADINE. [Suspect]
     Active Substance: LORATADINE
     Indication: CHRONIC LYMPHOCYTIC LEUKAEMIA
     Route: 048
     Dates: start: 20110503
  5. AMLODIPINE [Concomitant]
     Active Substance: AMLODIPINE BESYLATE
     Indication: PRODUCT USED FOR UNKNOWN INDICATION
     Route: 065
     Dates: start: 20110514
  6. CELESTONE [Concomitant]
     Active Substance: BETAMETHASONE
     Indication: RASH GENERALISED
     Route: 061
     Dates: start: 20110523
  7. KARVEZIDE [Concomitant]
     Active Substance: HYDROCHLOROTHIAZIDE\IRBESARTAN
     Indication: PRODUCT USED FOR UNKNOWN INDICATION
     Dates: start: 2006, end: 20110513
  8. ASPIRIN. [Concomitant]
     Active Substance: ASPIRIN
     Indication: PROPHYLAXIS
     Route: 065
     Dates: start: 20120210
  9. RITUXIMAB [Suspect]
     Active Substance: RITUXIMAB
     Route: 042
     Dates: start: 20110531, end: 20110922
  10. PANADOL [Concomitant]
     Active Substance: ACETAMINOPHEN
     Indication: PRODUCT USED FOR UNKNOWN INDICATION
     Route: 065
     Dates: start: 20110507
  11. CRESTOR [Concomitant]
     Active Substance: ROSUVASTATIN CALCIUM
     Indication: HYPERCHOLESTEROLAEMIA
     Route: 048
     Dates: start: 2010
  12. ALLOPURINOL. [Concomitant]
     Active Substance: ALLOPURINOL
     Indication: PRODUCT USED FOR UNKNOWN INDICATION
     Route: 065
     Dates: start: 20110430, end: 20110513
  13. ARANESP [Concomitant]
     Active Substance: DARBEPOETIN ALFA
     Indication: PRODUCT USED FOR UNKNOWN INDICATION
     Route: 058
     Dates: start: 20120131, end: 20141125
  14. CHLORAMBUCIL [Suspect]
     Active Substance: CHLORAMBUCIL
     Route: 048
  15. RITUXIMAB [Suspect]
     Active Substance: RITUXIMAB
     Indication: CHRONIC LYMPHOCYTIC LEUKAEMIA
     Route: 042
     Dates: start: 20110503
  16. VALTREX [Concomitant]
     Active Substance: VALACYCLOVIR HYDROCHLORIDE
     Indication: PRODUCT USED FOR UNKNOWN INDICATION
     Route: 065
     Dates: start: 20110430
  17. SENSITIZERS USED IN PHOTODYNAMIC/RADIATION THERAPY [Concomitant]
     Indication: PRODUCT USED FOR UNKNOWN INDICATION
     Dosage: 50 GY AND 20 FRACTIONS OVER 4 WEEKS
     Route: 065
  18. RESPRIM FORTE [Concomitant]
     Active Substance: SULFAMETHOXAZOLE\TRIMETHOPRIM
     Indication: PRODUCT USED FOR UNKNOWN INDICATION
     Dosage: 1 TABLET ON MONDAY, WEDNESDAY AND FRIDAY
     Route: 065
     Dates: start: 20110504, end: 20110513
  19. MINOXIDIL. [Concomitant]
     Active Substance: MINOXIDIL
     Indication: NEPHROTIC SYNDROME
     Route: 048
     Dates: start: 20120203

REACTIONS (2)
  - Squamous cell carcinoma [Recovered/Resolved]
  - Metastatic squamous cell carcinoma [Not Recovered/Not Resolved]

NARRATIVE: CASE EVENT DATE: 20110512
